FAERS Safety Report 4803290-6 (Version None)
Quarter: 2005Q4

REPORT INFORMATION
  Report Type: 
  Country: None (occurrence: None)
  Receive Date: 20051013
  Receipt Date: 20050627
  Transmission Date: 20060501
  Serious: No
  Sender: FDA-Public Use
  Company Number: 2005S1005572

PATIENT
  Age: 36 Year
  Sex: Female

DRUGS (2)
  1. DICYCLOMINE HYDROCHLORIDE CAPSULE, USP (10 MG) [Suspect]
     Indication: PAIN
     Dosage: 10 MG; PO
     Route: 048
     Dates: start: 20050625, end: 20050627
  2. ACIPHEX [Suspect]
     Dosage: PO
     Route: 048

REACTIONS (3)
  - DRUG INTERACTION [None]
  - HYPOAESTHESIA [None]
  - HYPOAESTHESIA ORAL [None]
